FAERS Safety Report 5616363-5 (Version None)
Quarter: 2008Q1

REPORT INFORMATION
  Report Type: 
  Country: None (occurrence: None)
  Receive Date: 20080205
  Receipt Date: 20080205
  Transmission Date: 20080703
  Serious: Yes (Life-Threatening)
  Sender: FDA-Public Use
  Company Number: None

PATIENT

DRUGS (1)
  1. ADENOSINE [Suspect]
     Dosage: 6 MG X1 IV BOLUS
     Route: 040
     Dates: start: 20080101, end: 20080201

REACTIONS (3)
  - DEVICE OCCLUSION [None]
  - MEDICATION ERROR [None]
  - PHARMACEUTICAL PRODUCT COMPLAINT [None]
